FAERS Safety Report 19399607 (Version 1)
Quarter: 2021Q2

REPORT INFORMATION
  Report Type: Report from Study
  Country: FR (occurrence: FR)
  Receive Date: 20210610
  Receipt Date: 20210610
  Transmission Date: 20210717
  Serious: Yes (Other)
  Sender: FDA-Public Use
  Company Number: FR-JNJFOC-20210611426

PATIENT
  Sex: Female

DRUGS (2)
  1. RITONAVIR. [Suspect]
     Active Substance: RITONAVIR
     Indication: HIV INFECTION
  2. DARUNAVIR [Suspect]
     Active Substance: DARUNAVIR
     Indication: HIV INFECTION
     Route: 048

REACTIONS (4)
  - Abortion spontaneous [Recovered/Resolved]
  - Hepatic enzyme increased [Unknown]
  - Treatment failure [Unknown]
  - Exposure during pregnancy [Recovered/Resolved]
